FAERS Safety Report 24892862 (Version 1)
Quarter: 2025Q1

REPORT INFORMATION
  Report Type: Spontaneous
  Country: JP (occurrence: JP)
  Receive Date: 20250128
  Receipt Date: 20250128
  Transmission Date: 20250409
  Serious: Yes (Death, Hospitalization, Other)
  Sender: GLAXOSMITHKLINE
  Company Number: JP-GSKJP-JP2025JPN009128AA

PATIENT

DRUGS (6)
  1. LAMICTAL [Suspect]
     Active Substance: LAMOTRIGINE
     Indication: Bipolar disorder
     Dosage: 25 MG, TID
     Dates: start: 202403
  2. CLOTIAZEPAM [Concomitant]
     Active Substance: CLOTIAZEPAM
  3. NORTRIPTYLINE HYDROCHLORIDE [Concomitant]
     Active Substance: NORTRIPTYLINE HYDROCHLORIDE
  4. ZOLPIDEM TARTRATE [Concomitant]
     Active Substance: ZOLPIDEM TARTRATE
  5. ETIZOLAM [Concomitant]
     Active Substance: ETIZOLAM
  6. RIVOTRIL [Concomitant]
     Active Substance: CLONAZEPAM

REACTIONS (6)
  - Completed suicide [Fatal]
  - Rash [Unknown]
  - Pyrexia [Unknown]
  - Lymphadenopathy [Unknown]
  - Mood swings [Unknown]
  - Inappropriate schedule of product administration [Unknown]

NARRATIVE: CASE EVENT DATE: 20240401
